FAERS Safety Report 6013646-4 (Version None)
Quarter: 2008Q4

REPORT INFORMATION
  Report Type: 
  Country: None (occurrence: None)
  Receive Date: 20081218
  Receipt Date: 20081218
  Transmission Date: 20090506
  Serious: Yes (Hospitalization)
  Sender: FDA-Public Use
  Company Number: None

PATIENT
  Age: 54 Year
  Sex: Female

DRUGS (1)
  1. OXALIPLATIN [Suspect]
     Indication: COLON CANCER
     Dosage: 215 MG OTHER IV
     Route: 042
     Dates: start: 20081216, end: 20081216

REACTIONS (3)
  - HYPOAESTHESIA [None]
  - INFUSION RELATED REACTION [None]
  - NEUROTOXICITY [None]
